FAERS Safety Report 7312248-7 (Version None)
Quarter: 2011Q1

REPORT INFORMATION
  Report Type: 
  Country: None (occurrence: None)
  Receive Date: 20110224
  Receipt Date: 20110218
  Transmission Date: 20110831
  Serious: Yes (Other)
  Sender: FDA-Public Use
  Company Number: A0914455A

PATIENT
  Sex: Female

DRUGS (1)
  1. VOTRIENT [Suspect]
     Dosage: 200MG PER DAY
     Route: 048

REACTIONS (1)
  - RENAL FAILURE [None]
